FAERS Safety Report 9893441 (Version 1)
Quarter: 2014Q1

REPORT INFORMATION
  Report Type: Spontaneous
  Country: US (occurrence: US)
  Receive Date: 20140213
  Receipt Date: 20140213
  Transmission Date: 20141002
  Serious: No
  Sender: FDA-Public Use
  Company Number: US-B.I. PHARMACEUTICALS,INC./RIDGEFIELD-2014-BI-06207BP

PATIENT
  Age: 40 Year
  Sex: Male

DRUGS (4)
  1. COMBIVENT [Suspect]
     Indication: ASTHMA
     Dosage: DOSE PER APPLICATION: 20 MCG / 100 MCG; DAILY DOSE: 240 MCG / 1200 MCG
     Route: 055
     Dates: start: 201307
  2. ADVAIR [Concomitant]
     Indication: ASTHMA
     Dosage: DOSE PER APPLICATION: 1 INHALATION; DAILY DOSE: 2 INHALATIONS
     Route: 055
  3. LAMICTAL [Concomitant]
     Indication: DEPRESSION
     Route: 048
  4. PAXIL [Concomitant]
     Indication: DEPRESSION
     Route: 048

REACTIONS (2)
  - Prescribed overdose [Not Recovered/Not Resolved]
  - Off label use [Unknown]
